FAERS Safety Report 4459139-7 (Version None)
Quarter: 2004Q3

REPORT INFORMATION
  Report Type: 
  Country: None (occurrence: None)
  Receive Date: 20040920
  Receipt Date: 20040920
  Transmission Date: 20050211
  Serious: No
  Sender: FDA-Public Use
  Company Number: None

PATIENT
  Age: 32 Year
  Sex: Female
  Weight: 79.3795 kg

DRUGS (4)
  1. PROZAC [Suspect]
     Indication: PANIC DISORDER
     Dosage: ONE OR TWO QD
     Dates: start: 19990211, end: 20020402
  2. PROZAC [Suspect]
     Indication: SCHIZOAFFECTIVE DISORDER
     Dosage: ONE OR TWO QD
     Dates: start: 19990211, end: 20020402
  3. ZYPREXA [Concomitant]
  4. ATIVAN [Concomitant]

REACTIONS (4)
  - ANXIETY [None]
  - DEPRESSION [None]
  - MOOD SWINGS [None]
  - PHARMACEUTICAL PRODUCT COMPLAINT [None]
